FAERS Safety Report 5272469-4 (Version None)
Quarter: 2007Q1

REPORT INFORMATION
  Report Type: 
  Country: None (occurrence: None)
  Receive Date: 20070320
  Receipt Date: 20070320
  Transmission Date: 20070707
  Serious: Yes (Other)
  Sender: FDA-Public Use
  Company Number: None

PATIENT
  Sex: Male
  Weight: 83.9154 kg

DRUGS (2)
  1. NARDIL [Suspect]
     Indication: ANXIETY
     Dosage: 60MG DAILY ORAL 047
     Route: 048
     Dates: start: 19960101, end: 20070101
  2. NARDIL [Suspect]
     Indication: DEPRESSION
     Dosage: 60MG DAILY ORAL 047
     Route: 048
     Dates: start: 19960101, end: 20070101

REACTIONS (14)
  - ABDOMINAL DISTENSION [None]
  - ANXIETY [None]
  - CONDITION AGGRAVATED [None]
  - DEPRESSION [None]
  - DISORIENTATION [None]
  - DRUG EFFECT DECREASED [None]
  - FATIGUE [None]
  - ILL-DEFINED DISORDER [None]
  - IMPAIRED WORK ABILITY [None]
  - INSOMNIA [None]
  - PHARMACEUTICAL PRODUCT COMPLAINT [None]
  - RASH PRURITIC [None]
  - SKIN HAEMORRHAGE [None]
  - WEIGHT INCREASED [None]
